FAERS Safety Report 4431695-4 (Version None)
Quarter: 2004Q3

REPORT INFORMATION
  Report Type: 
  Country: None (occurrence: None)
  Receive Date: 20040825
  Receipt Date: 20040820
  Transmission Date: 20050211
  Serious: Yes (Hospitalization, Disabling)
  Sender: FDA-Public Use
  Company Number: GB-JNJFOC-20040503859

PATIENT
  Sex: Female

DRUGS (14)
  1. REMICADE [Suspect]
     Indication: RHEUMATOID ARTHRITIS
     Route: 042
  2. METHOTREXATE [Concomitant]
     Route: 049
  3. PREDNISOLONE [Concomitant]
     Route: 049
  4. DISTAMINE [Concomitant]
  5. VOLTAREN [Concomitant]
  6. CODIS [Concomitant]
  7. CODIS [Concomitant]
  8. ATENOLOL [Concomitant]
  9. CO-PROXAMOL [Concomitant]
  10. CO-PROXAMOL [Concomitant]
  11. BENDROFLUAZIDE [Concomitant]
  12. RISEDRONATE [Concomitant]
  13. CITALOPRAM [Concomitant]
  14. VOLTAREN [Concomitant]

REACTIONS (1)
  - AMYOTROPHIC LATERAL SCLEROSIS [None]
